FAERS Safety Report 22734853 (Version 2)
Quarter: 2024Q1

REPORT INFORMATION
  Report Type: Report from Study
  Country: US (occurrence: US)
  Receive Date: 20230721
  Receipt Date: 20240108
  Transmission Date: 20240409
  Serious: No
  Sender: FDA-Public Use
  Company Number: US-BIOVITRUM-2023-US-012156

PATIENT
  Age: 24 Month
  Sex: Female

DRUGS (1)
  1. KINERET [Suspect]
     Active Substance: ANAKINRA
     Indication: Still^s disease
     Dosage: DAILY. HOWEVER, PHYSICIAN TOLD TO TAKE IT EVERY OTHER DAY LAST WEEK, AND TO STOP ON SATURDAY.
     Route: 058
     Dates: end: 2023

REACTIONS (5)
  - Intentional product misuse [Recovered/Resolved]
  - Injection site reaction [Unknown]
  - Erythema [Unknown]
  - Urinary tract infection [Unknown]
  - Urticaria [Unknown]

NARRATIVE: CASE EVENT DATE: 20230601
